FAERS Safety Report 10710239 (Version 1)
Quarter: 2015Q1

REPORT INFORMATION
  Report Type: Report from Study
  Country: US (occurrence: US)
  Receive Date: 20150114
  Receipt Date: 20150114
  Transmission Date: 20150721
  Serious: Yes (Hospitalization)
  Sender: FDA-Public Use
  Company Number: US-UCBSA-2015000696

PATIENT
  Age: 17 Year
  Sex: Female
  Weight: 34.1 kg

DRUGS (20)
  1. LACOSAMIDE EP [Suspect]
     Active Substance: LACOSAMIDE
     Dosage: 13 ML, 2X/DAY (BID)
     Dates: start: 20141001, end: 20141008
  2. OMEPRAZOLE. [Concomitant]
     Active Substance: OMEPRAZOLE
     Indication: PRODUCT USED FOR UNKNOWN INDICATION
     Dosage: 20 MG, ONCE
     Dates: start: 201412
  3. LACOSAMIDE EP [Suspect]
     Active Substance: LACOSAMIDE
     Dosage: 16 ML, 2X/DAY (BID)
     Dates: start: 20141008, end: 20141112
  4. LACOSAMIDE EP [Suspect]
     Active Substance: LACOSAMIDE
     Dosage: 20 ML, 2X/DAY (BID)
     Dates: start: 20141112
  5. LEVETIRACETAM. [Concomitant]
     Active Substance: LEVETIRACETAM
     Indication: EPILEPSY
     Dosage: 7 ML, 2X/DAY (BID)
     Dates: start: 20130822
  6. ETHYL CHLORIDE [Concomitant]
     Active Substance: ETHYL CHLORIDE
     Indication: PRODUCT USED FOR UNKNOWN INDICATION
     Dosage: 1 SPRAY AS NEEDED (PRN)
     Route: 061
     Dates: start: 201412
  7. TRANXENE T-TAB [Concomitant]
     Active Substance: CLORAZEPATE DIPOTASSIUM
     Indication: SEIZURE
     Dosage: 0.378 MG, Q 8HRS
  8. ZYRTEC [Concomitant]
     Active Substance: CETIRIZINE HYDROCHLORIDE
     Indication: HYPERSENSITIVITY
     Dosage: 10 MG, ONCE DAILY (QD)
  9. ZONISAMIDE. [Concomitant]
     Active Substance: ZONISAMIDE
     Indication: EPILEPSY
     Dosage: 13 ML, 2X/DAY (BID)
     Dates: start: 20140209
  10. LIDOCAINE. [Concomitant]
     Active Substance: LIDOCAINE
     Indication: PRODUCT USED FOR UNKNOWN INDICATION
     Dosage: 1 APPLICATION, AS NEEDED (PRN)
     Route: 061
     Dates: start: 201412
  11. LACOSAMIDE EP [Suspect]
     Active Substance: LACOSAMIDE
     Dosage: 10 ML, 2X/DAY (BID)
     Dates: start: 20140924, end: 20141001
  12. GLUCAGON. [Concomitant]
     Active Substance: GLUCAGON
     Indication: DIABETES MELLITUS
     Dosage: 1 MG, AS NEEDED (PRN)
     Route: 058
  13. DIASTAT ACUDIAL [Concomitant]
     Active Substance: DIAZEPAM
     Indication: SEIZURE
     Dosage: 7.5 MG, AS NEEDED (PRN)
     Route: 054
     Dates: start: 20120119
  14. LACOSAMIDE EP [Suspect]
     Active Substance: LACOSAMIDE
     Indication: EPILEPSY
     Dosage: 3 ML, 2X/DAY (BID)
     Dates: start: 20140910, end: 20140917
  15. BENZOCAINE. [Concomitant]
     Active Substance: BENZOCAINE
     Indication: PRODUCT USED FOR UNKNOWN INDICATION
     Dosage: 2 APPLICATION, AS NEEDED (PRN)
     Route: 061
     Dates: start: 201412
  16. NYSTATIN. [Concomitant]
     Active Substance: NYSTATIN
     Indication: PRODUCT USED FOR UNKNOWN INDICATION
     Dosage: 1 APPLICATION 2X/DAY (BID)
     Route: 061
     Dates: start: 201412
  17. LEVALBUTEROL [Concomitant]
     Active Substance: LEVALBUTEROL
     Indication: PRODUCT USED FOR UNKNOWN INDICATION
     Dosage: 1.25 MG, UNK
  18. LACOSAMIDE EP [Suspect]
     Active Substance: LACOSAMIDE
     Dosage: 6.6 ML, 2X/DAY (BID)
     Dates: start: 20140917, end: 20140924
  19. TYLENOL [Concomitant]
     Active Substance: ACETAMINOPHEN
     Indication: PAIN
     Dosage: 500 MG, AS NEEDED (PRN)
     Dates: start: 201412
  20. TYLENOL [Concomitant]
     Active Substance: ACETAMINOPHEN
     Indication: UNEVALUABLE EVENT

REACTIONS (1)
  - Seizure [Recovered/Resolved]

NARRATIVE: CASE EVENT DATE: 20141225
